FAERS Safety Report 23309271 (Version 17)
Quarter: 2025Q4

REPORT INFORMATION
  Report Type: Report from Study
  Country: US (occurrence: US)
  Receive Date: 20231218
  Receipt Date: 20251217
  Transmission Date: 20260118
  Serious: Yes (Hospitalization)
  Sender: PFIZER
  Company Number: US-PFIZER INC-PV202300198778

PATIENT
  Age: 82 Year
  Sex: Female

DRUGS (2)
  1. IBRANCE [Suspect]
     Active Substance: PALBOCICLIB
     Indication: Breast cancer female
     Dosage: 75 MG, CYCLIC  (1 X 75 MG TABLET, 1 TIME A DAY, 3-WEEK ON AND 1-WEEK OFF)
     Route: 048
     Dates: end: 20250716
  2. IBRANCE [Suspect]
     Active Substance: PALBOCICLIB
     Dosage: 1 TABLET DAILY FOR 21 DAYS ON AND 7 DAYS OFF

REACTIONS (1)
  - Pelvic fracture [Unknown]

NARRATIVE: CASE EVENT DATE: 20240101
